FAERS Safety Report 8623419-1 (Version None)
Quarter: 2012Q3

REPORT INFORMATION
  Report Type: 
  Country: None (occurrence: None)
  Receive Date: 20120827
  Receipt Date: 20120815
  Transmission Date: 20120928
  Serious: Yes (Hospitalization, Other)
  Sender: FDA-Public Use
  Company Number: IL-ELI_LILLY_AND_COMPANY-IL201207007715

PATIENT
  Sex: Female

DRUGS (10)
  1. PLAQUENIL [Concomitant]
     Dosage: 200 MG, UNK
  2. CALCIUM + VITAMIN D [Concomitant]
  3. MICROPIRIN [Concomitant]
     Dosage: 100 MG, UNK
  4. PREDNISONE TAB [Concomitant]
     Dosage: 5 MG, UNK
  5. PANTOPRAZOLE [Concomitant]
     Dosage: 40 MG, UNK
  6. COUMADIN [Concomitant]
     Dosage: UNK
  7. FORTEO [Suspect]
     Indication: OSTEOPOROSIS
     Dosage: 20 UG, QD
     Route: 058
     Dates: start: 20101205
  8. AMLO                               /00972402/ [Concomitant]
     Dosage: 5 MG, UNK
  9. FOLIC ACID [Concomitant]
     Dosage: 5 MG, UNK
  10. SIMVASTATIN [Concomitant]

REACTIONS (4)
  - WRIST FRACTURE [None]
  - FRACTURE DISPLACEMENT [None]
  - FALL [None]
  - INJECTION SITE ERYTHEMA [None]
